FAERS Safety Report 11121720 (Version 1)
Quarter: 2015Q2

REPORT INFORMATION
  Report Type: Spontaneous
  Country: US (occurrence: None)
  Receive Date: 20150518
  Receipt Date: 20150518
  Transmission Date: 20150821
  Serious: Yes (Other)
  Sender: FDA-Public Use
  Company Number: None

PATIENT
  Age: 48 Year
  Sex: Female
  Weight: 65.77 kg

DRUGS (23)
  1. CLOTRIMAZOLE AND BETAMETHASONE DIPROPIONATE [Concomitant]
     Active Substance: BETAMETHASONE\BETAMETHASONE DIPROPIONATE\CLOTRIMAZOLE
  2. HYDROXYZINE PAMOATE. [Concomitant]
     Active Substance: HYDROXYZINE PAMOATE
  3. SODIUM BICARBONATE. [Concomitant]
     Active Substance: SODIUM BICARBONATE
  4. EPSOM SALT [Concomitant]
     Active Substance: MAGNESIUM SULFATE
  5. MIDOL [Concomitant]
     Active Substance: IBUPROFEN
  6. METHYLPREDNISOLONE. [Concomitant]
     Active Substance: METHYLPREDNISOLONE
  7. ZOLPIDEM TARTRATE. [Concomitant]
     Active Substance: ZOLPIDEM TARTRATE
  8. PURE BAKING SODA [Concomitant]
     Active Substance: SODIUM BICARBONATE
  9. LITHIUM CARBONATE. [Concomitant]
     Active Substance: LITHIUM CARBONATE
  10. LORAZEPAM. [Concomitant]
     Active Substance: LORAZEPAM
  11. CORTISONE CREAM [Concomitant]
  12. GILENYA [Suspect]
     Active Substance: FINGOLIMOD HYDROCHLORIDE
     Indication: MULTIPLE SCLEROSIS RELAPSE
     Dosage: 1 PILL?INDEFINITELY?
     Route: 048
  13. LOSARTAN [Concomitant]
     Active Substance: LOSARTAN
  14. OATMEAL BATH [Concomitant]
  15. TYLENOL [Concomitant]
     Active Substance: ACETAMINOPHEN
  16. ARM+HAMMER ANTI-ITCH POWDER [Concomitant]
  17. ICE PACKS [Concomitant]
  18. PREDNISONE. [Concomitant]
     Active Substance: PREDNISONE
  19. MODAFINIL. [Concomitant]
     Active Substance: MODAFINIL
  20. LAMOTRIGINE. [Concomitant]
     Active Substance: LAMOTRIGINE
  21. ALEVE [Concomitant]
     Active Substance: NAPROXEN SODIUM
  22. CARVEDILOL. [Concomitant]
     Active Substance: CARVEDILOL
  23. LAMICILE CREAM [Concomitant]

REACTIONS (3)
  - Rash pruritic [None]
  - Rash [None]
  - Miliaria [None]

NARRATIVE: CASE EVENT DATE: 20140718
